FAERS Safety Report 6719807-0 (Version None)
Quarter: 2010Q2

REPORT INFORMATION
  Report Type: 
  Country: None (occurrence: None)
  Receive Date: 20100511
  Receipt Date: 20100428
  Transmission Date: 20101027
  Serious: Yes (Other)
  Sender: FDA-Public Use
  Company Number: PHHY2010JP27180

PATIENT

DRUGS (14)
  1. NEORAL [Suspect]
     Indication: INTERSTITIAL LUNG DISEASE
     Dosage: 125 MG/DAY
     Route: 048
  2. AMARYL [Concomitant]
     Dosage: UNK
  3. EVISTA [Concomitant]
     Dosage: UNK
  4. LASIX [Concomitant]
     Dosage: UNK
  5. ALDACTONE [Concomitant]
     Dosage: UNK
  6. PREDONINE [Concomitant]
     Dosage: UNK
  7. OMEPRAL [Concomitant]
     Dosage: UNK
  8. SUNRYTHM [Concomitant]
     Dosage: UNK
  9. CONIEL [Concomitant]
     Dosage: UNK
  10. JUVELA NICOTINATE [Concomitant]
     Dosage: UNK
  11. GASMOTIN [Concomitant]
     Dosage: UNK
  12. ULCERLMIN [Concomitant]
     Dosage: UNK
  13. SODIUM ALGINATE [Concomitant]
     Dosage: UNK
  14. FERROMIA [Concomitant]
     Dosage: UNK

REACTIONS (3)
  - HIATUS HERNIA [None]
  - IMMUNOSUPPRESSANT DRUG LEVEL DECREASED [None]
  - TREATMENT NONCOMPLIANCE [None]
